FAERS Safety Report 25877511 (Version 1)
Quarter: 2025Q4

REPORT INFORMATION
  Report Type: Spontaneous
  Country: CN (occurrence: CN)
  Receive Date: 20251003
  Receipt Date: 20251003
  Transmission Date: 20260118
  Serious: Yes (Hospitalization, Other)
  Sender: PFIZER
  Company Number: CN-TAKEDA-2025TUS084214

PATIENT
  Age: 61 Year
  Sex: Male

DRUGS (8)
  1. BRENTUXIMAB VEDOTIN [Suspect]
     Active Substance: BRENTUXIMAB VEDOTIN
     Indication: Anaplastic large cell lymphoma T- and null-cell types recurrent
     Dosage: 50.000 MILLIGRAM, BID
     Route: 042
     Dates: start: 20250830, end: 20250830
  2. EPIRUBICIN HYDROCHLORIDE [Suspect]
     Active Substance: EPIRUBICIN HYDROCHLORIDE
     Indication: Anaplastic large cell lymphoma T- and null-cell types recurrent
     Dosage: 90 MILLIGRAM ONCE A DAY
     Route: 042
     Dates: start: 20250830, end: 20250830
  3. DEXAMETHASONE SODIUM PHOSPHATE [Suspect]
     Active Substance: DEXAMETHASONE SODIUM PHOSPHATE
     Indication: Anaplastic large cell lymphoma T- and null-cell types recurrent
     Dosage: 15.000 MILLIGRAM, QD
     Route: 041
     Dates: start: 20250830, end: 20250903
  4. VINCRISTINE SULFATE [Suspect]
     Active Substance: VINCRISTINE SULFATE
     Indication: Anaplastic large cell lymphoma T- and null-cell types recurrent
     Dosage: 2.000 MILLIGRAM, QD
     Route: 042
     Dates: start: 20250830, end: 20250830
  5. CYCLOPHOSPHAMIDE [Suspect]
     Active Substance: CYCLOPHOSPHAMIDE
     Indication: Anaplastic large cell lymphoma T- and null-cell types recurrent
     Dosage: 1.200 GRAM, QD
     Route: 042
     Dates: start: 20250830, end: 20250830
  6. SODIUM CHLORIDE [Concomitant]
     Active Substance: SODIUM CHLORIDE
     Dosage: 100.000 MILLILITER, BID
     Route: 041
     Dates: start: 20250830, end: 20250830
  7. SODIUM CHLORIDE [Concomitant]
     Active Substance: SODIUM CHLORIDE
     Dosage: 20 MILLILITER, QD
     Route: 042
     Dates: start: 20250830, end: 20250830
  8. SODIUM CHLORIDE [Concomitant]
     Active Substance: SODIUM CHLORIDE
     Dosage: 50 MILLILITER, QD
     Route: 042
     Dates: start: 20250830, end: 20250830

REACTIONS (1)
  - Myelosuppression [Recovering/Resolving]

NARRATIVE: CASE EVENT DATE: 20250907
